FAERS Safety Report 4626256-8 (Version None)
Quarter: 2005Q2

REPORT INFORMATION
  Report Type: 
  Country: None (occurrence: None)
  Receive Date: 20050404
  Receipt Date: 20050215
  Transmission Date: 20051028
  Serious: Yes (Other)
  Sender: FDA-Public Use
  Company Number: PHBS2005JP02344

PATIENT
  Age: 25 Year
  Sex: Male
  Weight: 46 kg

DRUGS (19)
  1. NEORAL [Suspect]
     Indication: APLASTIC ANAEMIA
     Dosage: 200 MG/DAY
     Route: 048
     Dates: start: 20050127, end: 20050215
  2. CYCLOSPORINE [Suspect]
  3. NEUPOGEN [Concomitant]
  4. ATG [Suspect]
  5. METHYLPREDNISOLONE [Concomitant]
  6. GRAN [Suspect]
     Indication: NEUTROPHIL COUNT DECREASED
     Dosage: 300 UG/DAY
     Route: 058
     Dates: start: 20041227, end: 20050307
  7. GRAN [Suspect]
     Dosage: 150 UG/DAY
     Route: 058
     Dates: start: 20050309
  8. CIPROXAN [Concomitant]
     Indication: INFECTION PROPHYLAXIS
     Dosage: 300 MG/DAY
     Route: 048
     Dates: start: 20050107, end: 20050210
  9. GASTER D [Concomitant]
     Indication: PROPHYLAXIS AGAINST GASTROINTESTINAL ULCER
     Dosage: 40 MG/DAY
     Route: 048
     Dates: start: 20050107
  10. PREDNISOLONE [Concomitant]
     Indication: APLASTIC ANAEMIA
     Dosage: 5 MG/DAY
     Route: 048
     Dates: start: 20050107
  11. DIFLUCAN [Concomitant]
     Indication: INFECTION PROPHYLAXIS
     Dosage: 100 MG/DAY
     Dates: start: 20050107
  12. ADONA (AC-17) [Concomitant]
     Indication: HAEMORRHAGE
     Dosage: 90 MG/DAY
     Route: 048
     Dates: start: 20050107
  13. TRANSAMIN [Concomitant]
     Indication: HAEMORRHAGE
     Dosage: 750 MG/DAY
     Route: 048
     Dates: start: 20050107
  14. ASPARA K [Concomitant]
     Indication: HYPOKALAEMIA
     Dosage: 1800 MG/DAY
     Route: 048
     Dates: start: 20050107
  15. BAKTAR [Concomitant]
     Indication: PNEUMONIA
     Dosage: 1 G/DAY
     Route: 048
     Dates: start: 20050210
  16. CRAVIT [Concomitant]
     Indication: INFECTION PROPHYLAXIS
     Dosage: 300 MG/DAY
     Route: 048
     Dates: start: 20050211
  17. LOXONIN [Concomitant]
     Indication: ANALGESIC THERAPY
     Dosage: 30 MG/DAY
     Route: 048
     Dates: start: 20050213, end: 20050220
  18. PELTAZON [Concomitant]
     Indication: ANALGESIC THERAPY
     Dosage: 25 MG/DAY
     Route: 048
     Dates: start: 20050215, end: 20050215
  19. PENTAGIN [Concomitant]
     Indication: ANALGESIC THERAPY
     Dosage: 15 MG/DAY
     Route: 042
     Dates: start: 20050213, end: 20050213

REACTIONS (12)
  - ARTHRALGIA [None]
  - BACK PAIN [None]
  - BONE PAIN [None]
  - CARDIAC FAILURE [None]
  - CHEST PAIN [None]
  - HEADACHE [None]
  - INFECTION [None]
  - MYALGIA [None]
  - NEPHRITIS INTERSTITIAL [None]
  - PAIN [None]
  - PANCREATITIS ACUTE [None]
  - SERUM SICKNESS [None]
